FAERS Safety Report 5644460-7 (Version None)
Quarter: 2008Q1

REPORT INFORMATION
  Report Type: 
  Country: None (occurrence: None)
  Receive Date: 20080227
  Receipt Date: 20080212
  Transmission Date: 20080703
  Serious: Yes (Other)
  Sender: FDA-Public Use
  Company Number: 023815

PATIENT
  Sex: Female

DRUGS (3)
  1. CLARAVIS [Suspect]
     Indication: ACNE
     Dosage: 40 MG, QD, ORAL
     Route: 048
     Dates: start: 20070301, end: 20080212
  2. ADVAIR DISKUS 100/50 [Concomitant]
  3. ORTHO TRI-CYCLEN [Concomitant]

REACTIONS (2)
  - SELF INJURIOUS BEHAVIOUR [None]
  - SKIN LACERATION [None]
